FAERS Safety Report 4521294-8 (Version None)
Quarter: 2004Q4

REPORT INFORMATION
  Report Type: 
  Country: None (occurrence: None)
  Receive Date: 20041203
  Receipt Date: 20041126
  Transmission Date: 20050328
  Serious: Yes (Hospitalization)
  Sender: FDA-Public Use
  Company Number: TAP2004Q01539

PATIENT
  Age: 80 Year
  Sex: Male

DRUGS (1)
  1. LUPRON DEPOT-3 [Suspect]
     Indication: PROSTATE CANCER
     Dosage: 22.5 MG, 1 IN 3 M, INTRAMUSCULAR
     Route: 030
     Dates: start: 20040901

REACTIONS (2)
  - PNEUMONIA [None]
  - PNEUMOTHORAX [None]
